FAERS Safety Report 15167241 (Version 1)
Quarter: 2018Q3

REPORT INFORMATION
  Report Type: Spontaneous
  Country: US (occurrence: US)
  Receive Date: 20180719
  Receipt Date: 20180719
  Transmission Date: 20181010
  Serious: No
  Sender: FDA-Public Use
  Company Number: US-SA-2018SA177957

PATIENT
  Age: 73 Year
  Sex: Female

DRUGS (3)
  1. TOUJEO [Suspect]
     Active Substance: INSULIN GLARGINE
     Indication: DIABETES MELLITUS
     Dosage: UNK UNK, UNK
     Route: 065
  2. TYMLOS [Suspect]
     Active Substance: ABALOPARATIDE
     Indication: OSTEOPOROSIS
     Dosage: 60 MCG , QD
     Route: 058
     Dates: start: 20180413
  3. TYMLOS [Suspect]
     Active Substance: ABALOPARATIDE
     Indication: ATROPHIC VULVOVAGINITIS

REACTIONS (5)
  - Fatigue [Unknown]
  - Heart rate increased [Unknown]
  - Urine output increased [Unknown]
  - Back pain [Unknown]
  - Arthralgia [Not Recovered/Not Resolved]

NARRATIVE: CASE EVENT DATE: 20180413
